FAERS Safety Report 4602283-1 (Version None)
Quarter: 2005Q2

REPORT INFORMATION
  Report Type: 
  Country: None (occurrence: None)
  Receive Date: 20050201
  Receipt Date: 20040414
  Transmission Date: 20051028
  Serious: Yes (Hospitalization, Other)
  Sender: FDA-Public Use
  Company Number: 200417599BWH

PATIENT
  Age: 61 Year
  Sex: Female
  Weight: 63.5036 kg

DRUGS (2)
  1. AVELOX [Suspect]
     Indication: EAR PAIN
     Dosage: 400 MG, ONCE, ORAL
     Route: 048
     Dates: start: 20040413
  2. AVELOX [Suspect]
     Indication: OTITIS MEDIA CHRONIC
     Dosage: 400 MG, ONCE, ORAL
     Route: 048
     Dates: start: 20040413

REACTIONS (9)
  - ANAPHYLACTIC REACTION [None]
  - ANAPHYLACTIC SHOCK [None]
  - DYSPNOEA [None]
  - FAECAL INCONTINENCE [None]
  - LOSS OF CONSCIOUSNESS [None]
  - PALPITATIONS [None]
  - PRURITUS [None]
  - URINARY INCONTINENCE [None]
  - URTICARIA [None]
